FAERS Safety Report 13511421 (Version 1)
Quarter: 2017Q2

REPORT INFORMATION
  Report Type: Spontaneous
  Country: US (occurrence: US)
  Receive Date: 20170503
  Receipt Date: 20170503
  Transmission Date: 20170830
  Serious: No
  Sender: FDA-Public Use
  Company Number: None

PATIENT
  Age: 55 Year
  Sex: Female

DRUGS (1)
  1. BOTOX [Suspect]
     Active Substance: ONABOTULINUMTOXINA
     Indication: MIGRAINE
     Dosage: DOSE - 155 UNITS?FREQUENCY - EVERY 3 MONTHS
     Dates: start: 20161221, end: 20170503

REACTIONS (4)
  - Dry eye [None]
  - Therapy cessation [None]
  - Headache [None]
  - Superficial injury of eye [None]

NARRATIVE: CASE EVENT DATE: 20161221
